APPROVED DRUG PRODUCT: IBUPROFEN
Active Ingredient: IBUPROFEN
Strength: 200MG
Dosage Form/Route: TABLET;ORAL
Application: A071462 | Product #001
Applicant: SUN PHARMACEUTICAL INDUSTRIES INC
Approved: Oct 2, 1986 | RLD: No | RS: No | Type: DISCN